FAERS Safety Report 25310440 (Version 1)
Quarter: 2025Q2

REPORT INFORMATION
  Report Type: Report from Study
  Country: GB (occurrence: None)
  Receive Date: 20250514
  Receipt Date: 20250514
  Transmission Date: 20250716
  Serious: Yes (Hospitalization)
  Sender: Alvotech
  Company Number: GB-ALVOTECHPMS-2025-ALVOTECHPMS-004039

PATIENT
  Age: 58 Year
  Sex: Male

DRUGS (1)
  1. USTEKINUMAB [Suspect]
     Active Substance: USTEKINUMAB
     Indication: Crohn^s disease
     Dosage: 1 X 90 MG / 12 WEEK(S)?SOLUTION FOR INJECTION IN A PRE-FILLED SYRINGE
     Route: 058

REACTIONS (2)
  - Mass [Unknown]
  - Product dose omission issue [Unknown]
